FAERS Safety Report 9698401 (Version 2)
Quarter: 2014Q1

REPORT INFORMATION
  Report Type: Spontaneous
  Country: US (occurrence: US)
  Receive Date: 20131120
  Receipt Date: 20140114
  Transmission Date: 20141002
  Serious: Yes (Other)
  Sender: FDA-Public Use
  Company Number: US-009507513-1311USA004441

PATIENT
  Age: 22 Year
  Sex: Female

DRUGS (1)
  1. NEXPLANON [Suspect]
     Indication: CONTRACEPTION
     Dosage: ONE SINGLE ROD
     Route: 059
     Dates: start: 20131015, end: 20131017

REACTIONS (3)
  - Rash [Recovered/Resolved]
  - Injection site rash [Recovered/Resolved]
  - Hypersensitivity [Recovering/Resolving]
